FAERS Safety Report 9178709 (Version 1)
Quarter: 2012Q4

REPORT INFORMATION
  Report Type: 
  Country: US (occurrence: US)
  Receive Date: 20121029
  Receipt Date: 20121029
  Transmission Date: 20130627
  Serious: No
  Sender: FDA-Public Use
  Company Number: US-AMGEN-USASP2012052787

PATIENT
  Age: 72 Year
  Sex: Female
  Weight: 61.22 kg

DRUGS (14)
  1. ENBREL [Suspect]
     Indication: PRODUCT USED FOR UNKNOWN INDICATION
     Dosage: 50 mg, qwk
     Route: 058
  2. CALTRATE                           /00944201/ [Concomitant]
     Dosage: 600 UNK, UNK
  3. MEDROL                             /00049601/ [Concomitant]
     Dosage: 2 mg, UNK
  4. CADUET [Concomitant]
     Dosage: 5-20MG
  5. APAP CODEINE [Concomitant]
     Dosage: 300-15 mg, unk
  6. PAROXETINE [Concomitant]
     Dosage: 20 mg, UNK
  7. DIGOXIN [Concomitant]
     Dosage: 0.125 mg, UNK
  8. FOLIC ACID [Concomitant]
     Dosage: 1 mg, UNK
  9. PRILOSEC                           /00661201/ [Concomitant]
     Dosage: 20 mg, UNK
  10. DEXAMETH [Concomitant]
     Dosage: 0.1 %, UNK
  11. MURO 128 [Concomitant]
     Dosage: 5 %, UNK
  12. VITAMIN B [Concomitant]
     Dosage: UNK
  13. TAILENOL PM [Concomitant]
     Dosage: UNK
  14. TYLENOL 8 HOUR [Concomitant]
     Dosage: 650 mg, UNK

REACTIONS (7)
  - Weight decreased [Unknown]
  - Asthenia [Unknown]
  - Fatigue [Unknown]
  - Nervousness [Unknown]
  - Pain [Unknown]
  - Swelling [Unknown]
  - Chest pain [Unknown]
